FAERS Safety Report 6152048-7 (Version None)
Quarter: 2009Q2

REPORT INFORMATION
  Report Type: 
  Country: None (occurrence: None)
  Receive Date: 20090409
  Receipt Date: 20090409
  Transmission Date: 20091009
  Serious: Yes (Death)
  Sender: FDA-Public Use
  Company Number: None

PATIENT
  Sex: Male
  Weight: 91.4 kg

DRUGS (4)
  1. FLUDARABINE PHOSPHATE [Suspect]
     Indication: ACUTE MYELOID LEUKAEMIA
     Dosage: 64 MG DAILY X 2 IV
     Route: 042
     Dates: start: 20090119, end: 20090123
  2. FLUDARABINE PHOSPHATE [Suspect]
     Indication: CORD BLOOD TRANSPLANT THERAPY
     Dosage: 64 MG DAILY X 2 IV
     Route: 042
     Dates: start: 20090119, end: 20090123
  3. CYCLOPHOSPHAMIDE [Suspect]
     Indication: ACUTE MYELOID LEUKAEMIA
     Dosage: 1840 MG DAILY X 2 IV
     Route: 042
     Dates: start: 20090124, end: 20090125
  4. CYCLOPHOSPHAMIDE [Suspect]
     Indication: CORD BLOOD TRANSPLANT THERAPY
     Dosage: 1840 MG DAILY X 2 IV
     Route: 042
     Dates: start: 20090124, end: 20090125

REACTIONS (4)
  - HYPOXIA [None]
  - INFECTION [None]
  - NEUTROPENIA [None]
  - RESPIRATORY FAILURE [None]
